FAERS Safety Report 9255937 (Version 1)
Quarter: 2013Q2

REPORT INFORMATION
  Report Type: Spontaneous
  Country: US (occurrence: US)
  Receive Date: 20130425
  Receipt Date: 20130425
  Transmission Date: 20140414
  Serious: Yes (Other)
  Sender: FDA-Public Use
  Company Number: US-MYLANLABS-2013S1008141

PATIENT
  Age: 38 Year
  Sex: Female

DRUGS (6)
  1. LORAZEPAM [Suspect]
     Dosage: 31MG IN 1ST 8HOURS OF ADMISSION; TOTAL OF 183.5MG IV LORAZAPAM GIVEN
     Route: 042
  2. LORAZEPAM [Suspect]
     Dosage: TOTAL OF 24MG ORAL LORAZAPAM GIVEN
     Route: 048
  3. MIDAZOLAM [Suspect]
     Dosage: TOTAL OF 1221MG IV MIDAZOLAM GIVEN
     Route: 042
  4. PROPOFOL [Concomitant]
     Route: 065
  5. PHENOBARBITAL [Concomitant]
     Route: 065
  6. CLONIDINE [Concomitant]
     Route: 065

REACTIONS (1)
  - Delirium [Recovering/Resolving]
